FAERS Safety Report 10773361 (Version 1)
Quarter: 2015Q1

REPORT INFORMATION
  Report Type: Other
  Country: US (occurrence: US)
  Receive Date: 20150208
  Receipt Date: 20150208
  Transmission Date: 20150721
  Serious: No
  Sender: FDA-Public Use
  Company Number: US-ACORDA-ACO_107082_2014

PATIENT
  Sex: Female
  Weight: 72.56 kg

DRUGS (1)
  1. AMPYRA [Suspect]
     Active Substance: DALFAMPRIDINE
     Indication: GAIT DISTURBANCE
     Dosage: 10 MG, UNK
     Route: 048
     Dates: start: 2014

REACTIONS (3)
  - Malaise [Recovering/Resolving]
  - Muscular weakness [Recovering/Resolving]
  - Asthenia [Recovering/Resolving]
